FAERS Safety Report 9273164 (Version 5)
Quarter: 2014Q3

REPORT INFORMATION
  Report Type: Report from Study
  Country: NL (occurrence: NL)
  Receive Date: 20130506
  Receipt Date: 20140806
  Transmission Date: 20150326
  Serious: Yes (Hospitalization)
  Sender: FDA-Public Use
  Company Number: PHHO2011NL11076

PATIENT

DRUGS (12)
  1. FUROSEMIDE. [Concomitant]
     Active Substance: FUROSEMIDE
     Dosage: 20 MG, QD
  2. FUROSEMIDE. [Concomitant]
     Active Substance: FUROSEMIDE
     Dosage: 40 MG, QD
  3. LCZ696 [Suspect]
     Active Substance: INVESTIGATIONAL PRODUCT
     Dosage: 200 MG, BID
     Route: 048
     Dates: start: 20110729, end: 20130404
  4. ALLOPURINOL. [Concomitant]
     Active Substance: ALLOPURINOL
     Dosage: 100 MG, QD
  5. LCZ696 [Suspect]
     Active Substance: INVESTIGATIONAL PRODUCT
     Indication: CARDIAC FAILURE CHRONIC
     Dosage: 200 MG, BID
     Route: 048
     Dates: start: 20101110, end: 20110711
  6. AMIODARONE [Suspect]
     Active Substance: AMIODARONE
     Dosage: 600 MG, UNK
     Dates: start: 20130410
  7. PERINDOPRIL [Suspect]
     Active Substance: PERINDOPRIL
     Dosage: 4 MG, UNK
     Dates: start: 20130405, end: 20130425
  8. CRESTOR [Concomitant]
     Active Substance: ROSUVASTATIN CALCIUM
     Dosage: 10 MG, QD
  9. COLCHICINE. [Suspect]
     Active Substance: COLCHICINE
     Dosage: UNK
     Dates: start: 20120913, end: 20130426
  10. PROMOCARD [Concomitant]
     Active Substance: ISOSORBIDE MONONITRATE
     Dosage: 30 MG, QD
  11. METOPROLOL [Concomitant]
     Active Substance: METOPROLOL
     Dosage: 50 MG, QD
  12. ASCAL [Concomitant]
     Active Substance: CARBASALATE
     Dosage: 100 MG, QD

REACTIONS (2)
  - Diarrhoea [Recovered/Resolved]
  - Ventricular tachycardia [Recovered/Resolved]

NARRATIVE: CASE EVENT DATE: 20110711
